FAERS Safety Report 10194425 (Version 2)
Quarter: 2014Q2

REPORT INFORMATION
  Report Type: Spontaneous
  Country: US (occurrence: US)
  Receive Date: 20140526
  Receipt Date: 20140626
  Transmission Date: 20141212
  Serious: Yes (Hospitalization)
  Sender: FDA-Public Use
  Company Number: US-BIOGENIDEC-2014BI048591

PATIENT
  Age: 35 Year
  Sex: Female

DRUGS (4)
  1. AVONEX [Suspect]
     Indication: MULTIPLE SCLEROSIS
     Route: 030
     Dates: start: 20100511
  2. AVONEX [Suspect]
     Indication: MULTIPLE SCLEROSIS
     Route: 030
     Dates: start: 20140516
  3. AVONEX [Suspect]
     Indication: MULTIPLE SCLEROSIS
     Route: 030
     Dates: start: 20140519
  4. TYSABRI [Concomitant]

REACTIONS (16)
  - Pneumothorax [Not Recovered/Not Resolved]
  - Central venous catheterisation [Recovered/Resolved]
  - Device kink [Recovered/Resolved]
  - Cough [Recovered/Resolved]
  - Cyanosis [Recovered/Resolved]
  - Multiple sclerosis relapse [Recovered/Resolved]
  - Hypersomnia [Unknown]
  - Multiple sclerosis [Unknown]
  - Adverse drug reaction [Unknown]
  - Memory impairment [Unknown]
  - Anxiety [Unknown]
  - Pyrexia [Unknown]
  - Arthralgia [Unknown]
  - Hyperhidrosis [Unknown]
  - Headache [Unknown]
  - Feeling abnormal [Unknown]
